FAERS Safety Report 19359151 (Version 3)
Quarter: 2021Q3

REPORT INFORMATION
  Report Type: Report from Study
  Country: US (occurrence: US)
  Receive Date: 20210602
  Receipt Date: 20210819
  Transmission Date: 20211014
  Serious: Yes (Hospitalization, Other)
  Sender: FDA-Public Use
  Company Number: US-TAIHO ONCOLOGY  INC-EU-2021-01621

PATIENT
  Age: 53 Year
  Sex: Female

DRUGS (14)
  1. VITAMIN D [Concomitant]
     Active Substance: VITAMIN D NOS
  2. DIPHENOXYLATE/ATROPINE [Concomitant]
     Active Substance: ATROPINE\DIPHENOXYLATE
  3. ACETAMINOPHEN. [Concomitant]
     Active Substance: ACETAMINOPHEN
  4. LOPERAMIDE [Concomitant]
     Active Substance: LOPERAMIDE
  5. DULOXETINE. [Concomitant]
     Active Substance: DULOXETINE
  6. IRON [Concomitant]
     Active Substance: IRON
  7. ONDANSETRON [Concomitant]
     Active Substance: ONDANSETRON
  8. MIRTAZEPINE [Concomitant]
     Active Substance: MIRTAZAPINE
  9. LONSURF [Suspect]
     Active Substance: TIPIRACIL HYDROCHLORIDE\TRIFLURIDINE
     Indication: COLORECTAL CANCER
     Dosage: CYCLE UNKNOWN
     Route: 048
     Dates: start: 20210402
  10. AVASTIN [Suspect]
     Active Substance: BEVACIZUMAB
     Indication: PRODUCT USED FOR UNKNOWN INDICATION
     Dosage: DOSE, FREQUENCY UNKNOWN
     Route: 042
  11. LONSURF [Suspect]
     Active Substance: TIPIRACIL HYDROCHLORIDE\TRIFLURIDINE
     Indication: NEOPLASM MALIGNANT
     Dosage: CURRENT CYCLE UNKNOWN
     Route: 048
     Dates: start: 20210405
  12. MULTIVITAMIN [Concomitant]
     Active Substance: VITAMINS
  13. TAMSULOSIN [Concomitant]
     Active Substance: TAMSULOSIN
  14. BIOTIN [Concomitant]
     Active Substance: BIOTIN

REACTIONS (8)
  - Weight decreased [Not Recovered/Not Resolved]
  - Stomatitis [Not Recovered/Not Resolved]
  - Febrile neutropenia [Not Recovered/Not Resolved]
  - Diarrhoea [Not Recovered/Not Resolved]
  - Cytopenia [Not Recovered/Not Resolved]
  - Fatigue [Not Recovered/Not Resolved]
  - Decreased appetite [Not Recovered/Not Resolved]
  - Dehydration [Not Recovered/Not Resolved]

NARRATIVE: CASE EVENT DATE: 2021
